FAERS Safety Report 9233074 (Version 1)
Quarter: 2013Q2

REPORT INFORMATION
  Report Type: Spontaneous
  Country: US (occurrence: None)
  Receive Date: 20130415
  Receipt Date: 20130415
  Transmission Date: 20140414
  Serious: Yes (Disabling)
  Sender: FDA-Public Use
  Company Number: None

PATIENT
  Age: 33 Year
  Sex: Male
  Weight: 81.8 kg

DRUGS (2)
  1. ETHAMBUTOL [Suspect]
     Indication: LYMPH NODE TUBERCULOSIS
     Route: 048
     Dates: start: 20120808, end: 20130123
  2. ISONIAZID [Suspect]
     Route: 048
     Dates: start: 20120808, end: 20130123

REACTIONS (2)
  - Vitamin B complex deficiency [None]
  - Visual impairment [None]
